FAERS Safety Report 11991154 (Version 1)
Quarter: 2016Q1

REPORT INFORMATION
  Report Type: Spontaneous
  Country: US (occurrence: None)
  Receive Date: 20160202
  Receipt Date: 20160202
  Transmission Date: 20160526
  Serious: Yes (Death, Life-Threatening, Hospitalization, Other)
  Sender: FDA-Public Use
  Company Number: None

PATIENT
  Age: 94 Year
  Sex: Female
  Weight: 68.04 kg

DRUGS (2)
  1. WARFARIN [Suspect]
     Active Substance: WARFARIN
     Indication: THROMBOSIS
     Dosage: 5 MG 1 PILL ONCE A DAY, BY MOUTH
     Dates: start: 20150209, end: 20150309
  2. XARELTO [Suspect]
     Active Substance: RIVAROXABAN
     Dosage: 15 MG 1 PILL A DAY, ONCE A DAY, BY MOUTH

REACTIONS (5)
  - Internal haemorrhage [None]
  - Pain [None]
  - Feeding disorder [None]
  - Leukaemia [None]
  - Anxiety [None]

NARRATIVE: CASE EVENT DATE: 20150209
